FAERS Safety Report 15997441 (Version 2)
Quarter: 2019Q3

REPORT INFORMATION
  Report Type: Report from Study
  Country: US (occurrence: US)
  Receive Date: 20190222
  Receipt Date: 20190710
  Transmission Date: 20191004
  Serious: Yes (Other)
  Sender: FDA-Public Use
  Company Number: US-OTSUKA-2019_005044

PATIENT
  Sex: Female

DRUGS (1)
  1. TOLVAPTAN [Suspect]
     Active Substance: TOLVAPTAN
     Indication: HYPONATRAEMIC SYNDROME
     Dosage: UNK
     Route: 065

REACTIONS (6)
  - Memory impairment [Not Recovered/Not Resolved]
  - Blood sodium decreased [Unknown]
  - Renal injury [Unknown]
  - Brain injury [Unknown]
  - Nervousness [Unknown]
  - Confusional state [Not Recovered/Not Resolved]
